FAERS Safety Report 5299429-1 (Version None)
Quarter: 2007Q2

REPORT INFORMATION
  Report Type: 
  Country: None (occurrence: None)
  Receive Date: 20070411
  Receipt Date: 20070411
  Transmission Date: 20071010
  Serious: Yes (Other)
  Sender: FDA-Public Use
  Company Number: None

PATIENT
  Sex: Female
  Weight: 53.0709 kg

DRUGS (1)
  1. PAXIL CR [Suspect]
     Indication: ANXIETY DISORDER
     Dosage: 25MG 1 DAILY PO
     Route: 048
     Dates: start: 20070220, end: 20070322

REACTIONS (4)
  - INTENTIONAL SELF-INJURY [None]
  - SKIN LACERATION [None]
  - SUICIDAL BEHAVIOUR [None]
  - SUICIDAL IDEATION [None]
